FAERS Safety Report 19242749 (Version 1)
Quarter: 2021Q2

REPORT INFORMATION
  Report Type: Spontaneous
  Country: US (occurrence: US)
  Receive Date: 20210511
  Receipt Date: 20210511
  Transmission Date: 20210717
  Serious: Yes (Hospitalization)
  Sender: FDA-Public Use
  Company Number: None

PATIENT
  Age: 44 Year
  Sex: Female
  Weight: 179 kg

DRUGS (3)
  1. CASIRIVIMAB. [Suspect]
     Active Substance: CASIRIVIMAB
     Indication: COVID-19
     Dosage: ?          OTHER FREQUENCY:ONCE;?
     Route: 040
     Dates: start: 20210504, end: 20210504
  2. SODIUM CHLORIDE 0.9 % INFUSION (IV) [Concomitant]
     Dates: start: 20210504, end: 20210504
  3. IMDEVIMAB. [Suspect]
     Active Substance: IMDEVIMAB
     Indication: COVID-19
     Dosage: ?          OTHER FREQUENCY:ONCE;?
     Route: 040
     Dates: start: 20210504, end: 20210504

REACTIONS (9)
  - Diarrhoea [None]
  - Chest X-ray abnormal [None]
  - Chills [None]
  - Myalgia [None]
  - Decreased appetite [None]
  - Dyspnoea [None]
  - Blood albumin decreased [None]
  - Pyrexia [None]
  - Hypokalaemia [None]

NARRATIVE: CASE EVENT DATE: 20210507
